FAERS Safety Report 15711198 (Version 1)
Quarter: 2018Q4

REPORT INFORMATION
  Report Type: Report from Study
  Country: US (occurrence: US)
  Receive Date: 20181211
  Receipt Date: 20181211
  Transmission Date: 20190205
  Serious: Yes (Hospitalization, Other)
  Sender: FDA-Public Use
  Company Number: US-GILEAD-2018-0379630

PATIENT
  Age: 48 Year
  Sex: Male

DRUGS (14)
  1. TOBI [Concomitant]
     Active Substance: TOBRAMYCIN
  2. PREDNISONE. [Concomitant]
     Active Substance: PREDNISONE
  3. ENOXAPARIN [Concomitant]
     Active Substance: ENOXAPARIN
  4. OSELTAMIVIR [Concomitant]
     Active Substance: OSELTAMIVIR
  5. AZTREONAM LYSINE [Suspect]
     Active Substance: AZTREONAM LYSINE
     Indication: CYSTIC FIBROSIS
     Dosage: UNK UNK, TID QOM
     Route: 055
     Dates: start: 20140131
  6. TEMAZEPAM. [Concomitant]
     Active Substance: TEMAZEPAM
  7. SODIUM CHLORIDE. [Concomitant]
     Active Substance: SODIUM CHLORIDE
  8. CIPROFLOXACIN. [Concomitant]
     Active Substance: CIPROFLOXACIN
  9. PROVENTIL [SALBUTAMOL] [Concomitant]
  10. ADVAIR HFA [Concomitant]
     Active Substance: FLUTICASONE PROPIONATE\SALMETEROL XINAFOATE
  11. AZITHROMYCIN ANHYDROUS. [Concomitant]
     Active Substance: AZITHROMYCIN ANHYDROUS
  12. ELIQUIS [Concomitant]
     Active Substance: APIXABAN
  13. TESTOSTERONE ENANTATE [Concomitant]
     Active Substance: TESTOSTERONE
  14. PULMOZYME [Concomitant]
     Active Substance: DORNASE ALFA

REACTIONS (2)
  - Cystic fibrosis [Unknown]
  - Pulmonary congestion [Unknown]

NARRATIVE: CASE EVENT DATE: 20181123
